FAERS Safety Report 5269461-2 (Version None)
Quarter: 2007Q1

REPORT INFORMATION
  Report Type: 
  Country: None (occurrence: None)
  Receive Date: 20070314
  Receipt Date: 20070310
  Transmission Date: 20070707
  Serious: Yes (Hospitalization)
  Sender: FDA-Public Use
  Company Number: 234364

PATIENT
  Age: 79 Year
  Sex: Male

DRUGS (10)
  1. RITUXAN (RITUXIMAB) CON FOR SOLUTION FOR INFUSION [Suspect]
     Indication: NON-HODGKIN'S LYMPHOMA
     Dosage: 500 MG, INTRAVENOUS
     Route: 042
     Dates: start: 20061003
  2. CYCLOPHOSPHAMIDE [Concomitant]
  3. PIRARUBICIN (PIRARUBICIN) [Concomitant]
  4. VINDESINE (VINDESINE) [Concomitant]
  5. PREDNISOLONE [Concomitant]
  6. URSODESOXYCHOLIC ACID (URSODEOXYCHOLIC ACID) [Concomitant]
  7. PANTETHINE (PANTETHINE) [Concomitant]
  8. MAGNESIUM OXIDE (MAGNESIUM OXIDE) [Concomitant]
  9. TRICHLORMETHIAZIDE [Concomitant]
  10. FAMOTIDINE [Concomitant]

REACTIONS (4)
  - HEPATIC NECROSIS [None]
  - JAUNDICE [None]
  - LIVER DISORDER [None]
  - PYREXIA [None]
